FAERS Safety Report 17909091 (Version 6)
Quarter: 2021Q1

REPORT INFORMATION
  Report Type: Spontaneous
  Country: US (occurrence: US)
  Receive Date: 20200617
  Receipt Date: 20210222
  Transmission Date: 20210419
  Serious: Yes (Hospitalization)
  Sender: FDA-Public Use
  Company Number: NVSC2020US169144

PATIENT
  Sex: Female

DRUGS (4)
  1. PROMACTA [Suspect]
     Active Substance: ELTROMBOPAG OLAMINE
     Dosage: 75 MG, QD (STRENGTH 25 MG)
     Route: 048
     Dates: start: 20200506
  2. PROMACTA [Suspect]
     Active Substance: ELTROMBOPAG OLAMINE
     Dosage: 75 MG, QD (STRENGTH 75 MG)
     Route: 048
     Dates: start: 202006
  3. PROMACTA [Suspect]
     Active Substance: ELTROMBOPAG OLAMINE
     Dosage: 50 MG, QD (STRENGTH 50 MG)
     Route: 048
     Dates: start: 20210113
  4. PROMACTA [Suspect]
     Active Substance: ELTROMBOPAG OLAMINE
     Indication: IMMUNE THROMBOCYTOPENIA
     Dosage: 75 MG, QD (STRENGTH 75 MG)
     Route: 048
     Dates: start: 20200427

REACTIONS (8)
  - Vision blurred [Unknown]
  - Throat irritation [Unknown]
  - Fatigue [Unknown]
  - Headache [Unknown]
  - Skin discolouration [Unknown]
  - Abdominal pain upper [Unknown]
  - Asthenia [Unknown]
  - Memory impairment [Unknown]
